FAERS Safety Report 6321663-X (Version None)
Quarter: 2009Q3

REPORT INFORMATION
  Report Type: 
  Country: None (occurrence: None)
  Receive Date: 20090819
  Receipt Date: 20090806
  Transmission Date: 20100115
  Serious: Yes (Disabling)
  Sender: FDA-Public Use
  Company Number: 2009AL005217

PATIENT
  Age: 75 Year
  Sex: Male

DRUGS (8)
  1. ACETAMINOPHEN AND CODEINE PHOSPHATE [Suspect]
     Indication: PAIN
     Dosage: PO
     Route: 048
     Dates: start: 20070718, end: 20090306
  2. AMLODIPINE BESYLATE [Suspect]
     Indication: CARDIOVASCULAR DISORDER
     Dosage: 5 MG; PO
     Route: 048
     Dates: start: 20050817
  3. CARVEDILOL [Suspect]
     Indication: CARDIOVASCULAR DISORDER
     Dosage: 12.5 MG; PO
     Route: 048
     Dates: start: 20081021, end: 20090710
  4. FUROSEMIDE [Concomitant]
  5. ZIMOVANE [Concomitant]
  6. IRBESARTAN [Concomitant]
  7. SIMVASTATIN [Concomitant]
  8. RABEPRAZOLE SODIUM [Concomitant]

REACTIONS (2)
  - ANGIOEDEMA [None]
  - SWOLLEN TONGUE [None]
